FAERS Safety Report 7903109-0 (Version None)
Quarter: 2011Q4

REPORT INFORMATION
  Report Type: 
  Country: None (occurrence: None)
  Receive Date: 20111108
  Receipt Date: 20111108
  Transmission Date: 20120403
  Serious: No
  Sender: FDA-Public Use
  Company Number: None

PATIENT
  Sex: Male
  Weight: 70.5 kg

DRUGS (2)
  1. TAXOL [Suspect]
     Dosage: 85 MG
     Dates: end: 20110927
  2. CARBOPLATIN [Suspect]
     Dosage: 213 MG
     Dates: end: 20110927

REACTIONS (1)
  - GOUT [None]
